FAERS Safety Report 15838479 (Version 1)
Quarter: 2019Q1

REPORT INFORMATION
  Report Type: Spontaneous
  Country: FR (occurrence: FR)
  Receive Date: 20190117
  Receipt Date: 20190117
  Transmission Date: 20190417
  Serious: Yes (Other)
  Sender: FDA-Public Use
  Company Number: FR-BEH-2019098475

PATIENT
  Sex: Female

DRUGS (5)
  1. HIZENTRA [Suspect]
     Active Substance: HUMAN IMMUNOGLOBULIN G
     Dosage: 10 G (1 VIAL), QW
     Route: 065
     Dates: start: 201805, end: 201806
  2. HIZENTRA [Suspect]
     Active Substance: HUMAN IMMUNOGLOBULIN G
     Dosage: 10 G, QW
     Route: 065
     Dates: start: 201810
  3. HIZENTRA [Suspect]
     Active Substance: HUMAN IMMUNOGLOBULIN G
     Dosage: 8 G (2 VIALS OF 4G), QW
     Route: 065
     Dates: start: 201807, end: 201809
  4. HIZENTRA [Suspect]
     Active Substance: HUMAN IMMUNOGLOBULIN G
     Indication: PRODUCT USED FOR UNKNOWN INDICATION
     Dosage: 8 G, UNK
     Route: 065
     Dates: end: 2018
  5. HIZENTRA [Suspect]
     Active Substance: HUMAN IMMUNOGLOBULIN G
     Dosage: 2 G (1 VIAL), QW
     Route: 065
     Dates: start: 201807, end: 201809

REACTIONS (4)
  - Purulent discharge [Unknown]
  - Myalgia [Unknown]
  - Paralysis [Unknown]
  - Skin mass [Unknown]

NARRATIVE: CASE EVENT DATE: 201810
